FAERS Safety Report 12885786 (Version 1)
Quarter: 2016Q4

REPORT INFORMATION
  Report Type: Spontaneous
  Country: DE (occurrence: DE)
  Receive Date: 20161026
  Receipt Date: 20161026
  Transmission Date: 20170207
  Serious: Yes (Hospitalization, Other)
  Sender: FDA-Public Use
  Company Number: DE-TEVA-703586GER

PATIENT
  Sex: Female
  Weight: 60 kg

DRUGS (2)
  1. MYLEPSINUM 250 MG TABLETS [Suspect]
     Active Substance: PRIMIDONE
     Indication: EPILEPSY
     Route: 048
     Dates: start: 2006
  2. PANTOPRAZOL [Concomitant]
     Active Substance: PANTOPRAZOLE SODIUM
     Indication: GASTRIC ULCER
     Dates: start: 2012

REACTIONS (3)
  - Gastric ulcer [Unknown]
  - Pathogen resistance [Not Recovered/Not Resolved]
  - Gastrointestinal bacterial infection [Not Recovered/Not Resolved]

NARRATIVE: CASE EVENT DATE: 2012
